FAERS Safety Report 10304423 (Version 1)
Quarter: 2014Q3

REPORT INFORMATION
  Report Type: Spontaneous
  Country: US (occurrence: DE)
  Receive Date: 20140715
  Receipt Date: 20140715
  Transmission Date: 20150326
  Serious: Yes (Hospitalization)
  Sender: FDA-Public Use
  Company Number: 2014SP004006

PATIENT
  Age: 37 Year
  Sex: Male
  Weight: 95 kg

DRUGS (1)
  1. METHOTREXATE [Suspect]
     Active Substance: METHOTREXATE
     Indication: PSORIASIS
     Dates: start: 20120704, end: 201307

REACTIONS (3)
  - Abdominal pain lower [Unknown]
  - Diverticulitis [Recovered/Resolved with Sequelae]
  - C-reactive protein increased [Unknown]

NARRATIVE: CASE EVENT DATE: 20130716
